FAERS Safety Report 9394511 (Version 4)
Quarter: 2014Q1

REPORT INFORMATION
  Report Type: Report from Study
  Country: DE (occurrence: DE)
  Receive Date: 20130711
  Receipt Date: 20140117
  Transmission Date: 20141002
  Serious: Yes (Death, Hospitalization)
  Sender: FDA-Public Use
  Company Number: PHHY2013DE073359

PATIENT
  Sex: Male
  Weight: 89 kg

DRUGS (9)
  1. ICL670A [Suspect]
     Indication: MYELODYSPLASTIC SYNDROME
     Dosage: 500 MG, TID (20 MG/KG/DAY)
     Dates: start: 20120618
  2. ICL670A [Suspect]
     Dosage: 500 MG, QD
  3. ALDACTONE [Concomitant]
     Dosage: 25 (UNIT NOT PROVIDED) QD
     Dates: start: 20050101
  4. TORASEMIDE [Concomitant]
     Dosage: 10 MG, DAILY
     Dates: start: 20000115
  5. NOVAMINSULFON [Concomitant]
     Dosage: UNK UKN, (40X4 DROPS, DAILY)
     Dates: start: 20080901
  6. ONDANSETRON [Concomitant]
     Dosage: 4 MG, DAILY
     Dates: start: 20120523
  7. OXYGESIC [Concomitant]
     Dosage: 20 MG, DAILY
     Dates: start: 20130516
  8. OXYCODON [Concomitant]
     Dosage: 10 MG, DAILY
     Dates: start: 20130313
  9. BLOOD TRANSFUSION, AUXILIARY PRODUCTS [Concomitant]
     Dosage: 8 ERYTHROCYTE CONCENTRATES PER MONTH
     Dates: start: 20111102

REACTIONS (3)
  - Blood alkaline phosphatase increased [Fatal]
  - Multi-organ failure [Fatal]
  - Ascites [Not Recovered/Not Resolved]
